FAERS Safety Report 19953755 (Version 1)
Quarter: 2021Q4

REPORT INFORMATION
  Report Type: Spontaneous
  Country: US (occurrence: US)
  Receive Date: 20211014
  Receipt Date: 20211014
  Transmission Date: 20220303
  Serious: No
  Sender: FDA-Public Use
  Company Number: 2021A768068

PATIENT

DRUGS (5)
  1. SEROQUEL [Suspect]
     Active Substance: QUETIAPINE FUMARATE
     Dosage: UNKNOWN
     Route: 048
  2. SERTRALINE [Suspect]
     Active Substance: SERTRALINE HYDROCHLORIDE
     Dosage: 150.0MG UNKNOWN
     Route: 065
  3. DONAZEPAM [Concomitant]
     Route: 065
  4. ARIPIPRAZOLE [Concomitant]
     Active Substance: ARIPIPRAZOLE
     Dosage: UNKNOWN
     Route: 065
  5. LAMOTRIGINE [Concomitant]
     Active Substance: LAMOTRIGINE
     Dosage: 75.0MG UNKNOWN
     Route: 065

REACTIONS (2)
  - Hypomania [Unknown]
  - Adverse event [Unknown]

NARRATIVE: CASE EVENT DATE: 20210301
